FAERS Safety Report 10302267 (Version 1)
Quarter: 2014Q3

REPORT INFORMATION
  Report Type: Spontaneous
  Country: DE (occurrence: DE)
  Receive Date: 20140714
  Receipt Date: 20140714
  Transmission Date: 20150326
  Serious: Yes (Other)
  Sender: FDA-Public Use
  Company Number: PHHY2014DE085399

PATIENT
  Sex: Female

DRUGS (18)
  1. DOXEPIN [Suspect]
     Active Substance: DOXEPIN
  2. HALOPERIDOL. [Suspect]
     Active Substance: HALOPERIDOL
  3. PERAZINE [Suspect]
     Active Substance: PERAZINE
  4. CLOMIPRAMINE [Suspect]
     Active Substance: CLOMIPRAMINE
  5. FLUVOXAMINE [Suspect]
     Active Substance: FLUVOXAMINE
  6. DIAZEPAM. [Suspect]
     Active Substance: DIAZEPAM
  7. AMITRIPTYLINE [Suspect]
     Active Substance: AMITRIPTYLINE
  8. SULPIRIDE [Suspect]
     Active Substance: SULPIRIDE
  9. CARBAMAZEPINE. [Suspect]
     Active Substance: CARBAMAZEPINE
     Dosage: 450 MG, PER DAY
  10. LEVOMEPROMAZINE [Suspect]
     Active Substance: LEVOMEPROMAZINE
  11. CLOZAPINE. [Suspect]
     Active Substance: CLOZAPINE
     Indication: DEPRESSION
     Dosage: 600 MG, PER DAY
     Dates: start: 199105
  12. THIORIDAZINE [Suspect]
     Active Substance: THIORIDAZINE
  13. CLOZAPINE. [Suspect]
     Active Substance: CLOZAPINE
     Dosage: 400 MG, PER DAY
  14. MIANSERIN [Suspect]
     Active Substance: MIANSERIN
  15. TRANYLCYPROMINE [Suspect]
     Active Substance: TRANYLCYPROMINE
  16. CORTISOL [Suspect]
     Active Substance: HYDROCORTISONE
  17. DIBENZEPIN HYDROCHLORIDE [Suspect]
     Active Substance: DIBENZEPIN HYDROCHLORIDE
  18. LITHIUM CARBONATE. [Suspect]
     Active Substance: LITHIUM CARBONATE
     Dosage: 2 DF, UNK

REACTIONS (2)
  - Pleurothotonus [Recovered/Resolved]
  - Depression [Recovering/Resolving]

NARRATIVE: CASE EVENT DATE: 199108
